FAERS Safety Report 8351376-4 (Version None)
Quarter: 2012Q2

REPORT INFORMATION
  Report Type: 
  Country: None (occurrence: None)
  Receive Date: 20120510
  Receipt Date: 20120501
  Transmission Date: 20120825
  Serious: Yes (Hospitalization, Disabling, Other)
  Sender: FDA-Public Use
  Company Number: US-MERCK-1103USA00842

PATIENT
  Age: 50 Year
  Sex: Female

DRUGS (3)
  1. ZOVIRAX [Concomitant]
     Indication: HERPES VIRUS INFECTION
     Route: 065
     Dates: start: 20000101, end: 20070801
  2. FOSAMAX [Suspect]
     Indication: OSTEOPOROSIS
     Route: 048
     Dates: start: 20001001, end: 20080101
  3. ALENDRONATE SODIUM [Suspect]
     Indication: OSTEOPOROSIS
     Route: 048
     Dates: start: 20080101, end: 20091201

REACTIONS (15)
  - CHEST PAIN [None]
  - STRESS FRACTURE [None]
  - PAIN IN EXTREMITY [None]
  - LOW TURNOVER OSTEOPATHY [None]
  - FOOT FRACTURE [None]
  - FALL [None]
  - FEMUR FRACTURE [None]
  - DEPRESSION [None]
  - LOWER LIMB FRACTURE [None]
  - MICTURITION URGENCY [None]
  - SWELLING FACE [None]
  - IRRITABLE BOWEL SYNDROME [None]
  - HERPES ZOSTER [None]
  - VAGINAL DISORDER [None]
  - HYPERSENSITIVITY [None]
